FAERS Safety Report 5076880-6 (Version None)
Quarter: 2006Q3

REPORT INFORMATION
  Report Type: 
  Country: None (occurrence: None)
  Receive Date: 20060810
  Receipt Date: 20060419
  Transmission Date: 20061208
  Serious: Yes (Hospitalization)
  Sender: FDA-Public Use
  Company Number: FR-NOVOPROD-252686

PATIENT
  Age: 23 Year
  Sex: Male
  Weight: 75 kg

DRUGS (5)
  1. NORDITROPIN SIMPLEXX [Suspect]
     Indication: GROWTH HORMONE DEFICIENCY
     Dosage: .3 MG, QD
     Route: 058
     Dates: start: 20050210
  2. LEVOTHYROXINE SODIUM [Concomitant]
     Dosage: 200 UG, QD
     Dates: start: 19841001
  3. HYDROCORTISONE TAB [Concomitant]
     Dosage: 4 MG, UNK
     Route: 048
  4. MINRIN [Concomitant]
     Dosage: 0,4MG QD
     Route: 048
     Dates: start: 19841001
  5. ANDROTARDYL [Concomitant]
     Dosage: 250 MG, QD
     Route: 048
     Dates: start: 19970901

REACTIONS (6)
  - ASTHENIA [None]
  - BRAIN SCAN ABNORMAL [None]
  - HEADACHE [None]
  - HYPERSOMNIA [None]
  - LOSS OF CONSCIOUSNESS [None]
  - WEIGHT DECREASED [None]
